FAERS Safety Report 4947834-2 (Version None)
Quarter: 2006Q1

REPORT INFORMATION
  Report Type: 
  Country: None (occurrence: None)
  Receive Date: 20060317
  Receipt Date: 20060317
  Transmission Date: 20060701
  Serious: Yes (Hospitalization, Disabling)
  Sender: FDA-Public Use
  Company Number: None

PATIENT
  Age: 35 Year
  Sex: Male
  Weight: 49 kg

DRUGS (1)
  1. TRAMADOL HCL [Suspect]
     Indication: BACK PAIN
     Dosage: 50MG  ONCE  PO
     Route: 048
     Dates: start: 20060227, end: 20060227

REACTIONS (6)
  - ANXIETY [None]
  - DYSKINESIA [None]
  - DYSPNOEA [None]
  - EXTRAPYRAMIDAL DISORDER [None]
  - SPEECH DISORDER [None]
  - TREMOR [None]
